FAERS Safety Report 7633258-6 (Version None)
Quarter: 2011Q3

REPORT INFORMATION
  Report Type: 
  Country: None (occurrence: None)
  Receive Date: 20110718
  Receipt Date: 20110711
  Transmission Date: 20111222
  Serious: Yes (Other)
  Sender: FDA-Public Use
  Company Number: CIP07002794

PATIENT
  Age: 86 Year
  Sex: Female

DRUGS (1)
  1. ENABLEX [Suspect]
     Indication: HYPERTONIC BLADDER
     Dosage: 7.5 MG, DAILY, TOOK THREE DOSES, ORAL
     Route: 048
     Dates: start: 20070101, end: 20070101

REACTIONS (9)
  - BACK PAIN [None]
  - POLLAKIURIA [None]
  - MALAISE [None]
  - LOSS OF CONSCIOUSNESS [None]
  - NECK PAIN [None]
  - INSOMNIA [None]
  - ANURIA [None]
  - DIABETES MELLITUS INADEQUATE CONTROL [None]
  - BEDRIDDEN [None]
